FAERS Safety Report 5847699-0 (Version None)
Quarter: 2008Q3

REPORT INFORMATION
  Report Type: 
  Country: None (occurrence: None)
  Receive Date: 20080818
  Receipt Date: 20080806
  Transmission Date: 20090109
  Serious: Yes (Hospitalization)
  Sender: FDA-Public Use
  Company Number: NZ-NOVOPROD-278434

PATIENT
  Sex: Female

DRUGS (1)
  1. NOVORAPID [Suspect]
     Indication: GESTATIONAL DIABETES
     Dosage: UNK, TID

REACTIONS (3)
  - CAESAREAN SECTION [None]
  - CARDIAC ARREST [None]
  - PREMATURE LABOUR [None]
